FAERS Safety Report 5340583-0 (Version None)
Quarter: 2007Q2

REPORT INFORMATION
  Report Type: 
  Country: None (occurrence: None)
  Receive Date: 20070405
  Receipt Date: 20070129
  Transmission Date: 20071010
  Serious: No
  Sender: FDA-Public Use
  Company Number: US200701005717

PATIENT
  Age: 61 Year
  Sex: Female

DRUGS (3)
  1. CYMBALTA [Suspect]
     Indication: PAIN
     Dosage: 20 MG
     Dates: start: 20060101
  2. CYMBALTA [Suspect]
     Indication: PAIN
     Dosage: 20 MG
     Dates: start: 20070117
  3. LEXAPRO [Concomitant]

REACTIONS (6)
  - ABDOMINAL PAIN UPPER [None]
  - CONFUSIONAL STATE [None]
  - EMOTIONAL DISORDER [None]
  - FEELING ABNORMAL [None]
  - GASTROENTERITIS VIRAL [None]
  - HYPERHIDROSIS [None]
